FAERS Safety Report 7775202-7 (Version None)
Quarter: 2011Q3

REPORT INFORMATION
  Report Type: 
  Country: None (occurrence: None)
  Receive Date: 20110923
  Receipt Date: 20110920
  Transmission Date: 20111222
  Serious: Yes (Life-Threatening, Hospitalization, Other)
  Sender: FDA-Public Use
  Company Number: US-BRISTOL-MYERS SQUIBB COMPANY-14262661

PATIENT
  Age: 77 Year
  Sex: Male
  Weight: 97 kg

DRUGS (15)
  1. LASIX [Concomitant]
  2. CATAPRES [Concomitant]
  3. PRILOSEC [Concomitant]
  4. MINOCYCLINE HCL [Concomitant]
  5. CETUXIMAB [Suspect]
     Indication: NON-SMALL CELL LUNG CANCER METASTATIC
     Dosage: INTIAL DOSE 22MAY08. REC + LAST INF 12JUN08, 535MG1 IN 1 WK INTER 23JUN08 DISCONT:29JUN08
     Route: 042
     Dates: start: 20080522, end: 20080629
  6. ALIMTA [Suspect]
     Indication: NON-SMALL CELL LUNG CANCER METASTATIC
     Dosage: INTIAL DOSE 22MAY08,12JUN08, 535 MG, 1 IN 3 WEEK. INTERRUPTED 23-JUN-08,RESTARTED ON 10JUL08
     Route: 042
     Dates: start: 20080522
  7. NORVASC [Concomitant]
  8. ACYCLOVIR [Concomitant]
  9. STEROIDS [Concomitant]
     Dosage: STEROID ANTIBACTERIALS
  10. COZAAR [Concomitant]
     Dosage: AT BEDTIME
  11. ASPIRIN [Concomitant]
  12. FOLIC ACID [Concomitant]
  13. CALCITRIOL [Concomitant]
  14. LISINOPRIL [Concomitant]
  15. LOPRESSOR [Concomitant]

REACTIONS (8)
  - GASTROINTESTINAL HAEMORRHAGE [None]
  - TACHYCARDIA [None]
  - PULMONARY FIBROSIS [None]
  - RENAL FAILURE [None]
  - HYPOXIA [None]
  - HAEMOGLOBIN DECREASED [None]
  - CELLULITIS [None]
  - PANCYTOPENIA [None]
